FAERS Safety Report 8086315-7 (Version None)
Quarter: 2012Q1

REPORT INFORMATION
  Report Type: 
  Country: None (occurrence: None)
  Receive Date: 20120128
  Receipt Date: 20110509
  Transmission Date: 20120608
  Serious: No
  Sender: FDA-Public Use
  Company Number: US-ABBOTT-11P-163-0724408-00

PATIENT
  Age: 25 Year
  Sex: Female

DRUGS (6)
  1. AMBIEN [Concomitant]
     Indication: INSOMNIA
     Dosage: 10 MG AT BEDTIME, PRN
  2. HUMIRA [Suspect]
     Indication: CROHN'S DISEASE
     Dosage: 160MG DAY 1
     Dates: start: 20110504
  3. PROZAC [Concomitant]
     Indication: PRODUCT USED FOR UNKNOWN INDICATION
  4. PREDNISONE TAB [Concomitant]
     Indication: PRODUCT USED FOR UNKNOWN INDICATION
  5. MERCAPTOPURINE [Concomitant]
     Indication: PRODUCT USED FOR UNKNOWN INDICATION
  6. ATIVAN [Concomitant]
     Indication: ANXIETY

REACTIONS (6)
  - NAUSEA [None]
  - EXCORIATION [None]
  - INJECTION SITE HAEMATOMA [None]
  - FALL [None]
  - INJECTION SITE PAIN [None]
  - NASOPHARYNGITIS [None]
